FAERS Safety Report 9162267 (Version 2)
Quarter: 2013Q2

REPORT INFORMATION
  Report Type: Report from Study
  Country: NL (occurrence: NL)
  Receive Date: 20130314
  Receipt Date: 20130430
  Transmission Date: 20140414
  Serious: Yes (Death, Other)
  Sender: FDA-Public Use
  Company Number: PHHY2013NL024695

PATIENT
  Age: 59 Year
  Sex: Male

DRUGS (4)
  1. ZOMETA [Suspect]
     Indication: METASTASES TO BONE
     Dosage: 4 MG / 100 ML ONCE PER 28 DAYS
     Route: 042
  2. ZOMETA [Suspect]
     Dosage: 4 MG / 100 ML ONCE PER 28 DAYS
     Route: 042
     Dates: start: 20130116
  3. ZOMETA [Suspect]
     Dosage: 4 MG / 100 ML ONCE PER 28 DAYS
     Route: 042
     Dates: start: 20130212
  4. ZOMETA [Suspect]
     Dosage: 4 MG / 100 ML ONCE PER 28 DAYS
     Route: 042
     Dates: start: 20130312

REACTIONS (3)
  - Death [Fatal]
  - General physical health deterioration [Unknown]
  - Metastasis [Unknown]
